FAERS Safety Report 4384164-4 (Version None)
Quarter: 2004Q2

REPORT INFORMATION
  Report Type: 
  Country: None (occurrence: None)
  Receive Date: 20040623
  Receipt Date: 20040623
  Transmission Date: 20050107
  Serious: Yes (Other)
  Sender: FDA-Public Use
  Company Number: None

PATIENT
  Sex: Male
  Weight: 21 kg

DRUGS (1)
  1. RHINOCORT AQUA 32 MICROGRAMS [Suspect]
     Indication: OBSTRUCTIVE AIRWAYS DISORDER
     Dosage: 1 PUDD DAY NASAL
     Route: 045
     Dates: start: 20040603, end: 20040622

REACTIONS (1)
  - COUGH [None]
